FAERS Safety Report 6675282-6 (Version None)
Quarter: 2010Q2

REPORT INFORMATION
  Report Type: 
  Country: None (occurrence: None)
  Receive Date: 20100409
  Receipt Date: 20100108
  Transmission Date: 20101027
  Serious: No
  Sender: FDA-Public Use
  Company Number: A0838499A

PATIENT
  Age: 66 Year
  Sex: Female

DRUGS (2)
  1. TYKERB [Suspect]
     Dosage: 1000MG PER DAY
     Route: 048
     Dates: start: 20091227
  2. FASLODEX [Concomitant]
     Route: 065

REACTIONS (2)
  - NAUSEA [None]
  - VOMITING [None]
